FAERS Safety Report 8351611-2 (Version None)
Quarter: 2012Q2

REPORT INFORMATION
  Report Type: 
  Country: None (occurrence: None)
  Receive Date: 20120511
  Receipt Date: 20120501
  Transmission Date: 20120825
  Serious: No
  Sender: FDA-Public Use
  Company Number: US-BIOGENIDEC-2011BI048302

PATIENT
  Age: 27 Year
  Sex: Male

DRUGS (1)
  1. TYSABRI [Suspect]
     Indication: MULTIPLE SCLEROSIS
     Route: 042
     Dates: start: 20111220, end: 20120313

REACTIONS (8)
  - FEELING HOT [None]
  - HYPOTENSION [None]
  - DRUG SPECIFIC ANTIBODY PRESENT [None]
  - FLUSHING [None]
  - FATIGUE [None]
  - CHEST PAIN [None]
  - INFLUENZA [None]
  - CHEST DISCOMFORT [None]
